FAERS Safety Report 10243926 (Version 1)
Quarter: 2014Q2

REPORT INFORMATION
  Report Type: Spontaneous
  Country: US (occurrence: None)
  Receive Date: 20140616
  Receipt Date: 20140616
  Transmission Date: 20141212
  Serious: Yes (Other)
  Sender: FDA-Public Use
  Company Number: 2348121

PATIENT
  Sex: 0

DRUGS (1)
  1. 1 % LIDOCAINE HCL INJECTION, USP (LIDOCAINE HYDROCHLORIDE) [Suspect]
     Indication: EYE DISORDER
     Route: 047
     Dates: start: 20140424, end: 201404

REACTIONS (6)
  - Foreign body in eye [None]
  - Product contamination physical [None]
  - Product quality issue [None]
  - Wrong technique in drug usage process [None]
  - Incorrect product storage [None]
  - Inadequate aseptic technique in use of product [None]
